FAERS Safety Report 7780745-6 (Version None)
Quarter: 2011Q3

REPORT INFORMATION
  Report Type: 
  Country: None (occurrence: None)
  Receive Date: 20110927
  Receipt Date: 20110720
  Transmission Date: 20111222
  Serious: No
  Sender: FDA-Public Use
  Company Number: US-BRISTOL-MYERS SQUIBB COMPANY-15914203

PATIENT
  Age: 91 Year
  Sex: Male

DRUGS (2)
  1. AVAPRO [Suspect]
     Indication: HYPERTENSION
     Dosage: CHANGE TO 150MG TO 75MG.
  2. AVALIDE [Suspect]
     Dosage: 1DF:150MG/12.5MG.

REACTIONS (3)
  - ABDOMINAL DISCOMFORT [None]
  - JOINT SWELLING [None]
  - BLOOD PRESSURE SYSTOLIC DECREASED [None]
